FAERS Safety Report 6051170-3 (Version None)
Quarter: 2009Q1

REPORT INFORMATION
  Report Type: 
  Country: None (occurrence: None)
  Receive Date: 20090121
  Receipt Date: 20090121
  Transmission Date: 20090719
  Serious: Yes (Other)
  Sender: FDA-Public Use
  Company Number: None

PATIENT
  Age: 55 Year
  Sex: Female
  Weight: 67 kg

DRUGS (3)
  1. TAMOXIFEN CITRATE [Suspect]
     Indication: BREAST CANCER
     Dosage: 20 MG DAILY X 5 YEARS PO
     Route: 048
     Dates: start: 19951201, end: 20001201
  2. CYTOXAN [Suspect]
     Indication: BREAST CANCER
     Dosage: 4080 MG 4 CYCLES IV BOLUS
     Route: 040
     Dates: start: 19950629, end: 19950831
  3. ADRIAMYCIN PFS [Suspect]
     Indication: BREAST CANCER
     Dosage: 612 MG 4 CYCLES IV BOLUS
     Route: 040
     Dates: start: 19950629, end: 19950831

REACTIONS (1)
  - BREAST CANCER IN SITU [None]
